FAERS Safety Report 4473988-0 (Version None)
Quarter: 2004Q4

REPORT INFORMATION
  Report Type: 
  Country: None (occurrence: None)
  Receive Date: 20041008
  Receipt Date: 20040916
  Transmission Date: 20050328
  Serious: Yes (Hospitalization, Other)
  Sender: FDA-Public Use
  Company Number: USA040978453

PATIENT
  Age: 89 Year
  Sex: Male
  Weight: 56 kg

DRUGS (1)
  1. FORTEO [Suspect]
     Indication: OSTEOPOROSIS
     Dosage: 20 UG/1 DAY

REACTIONS (4)
  - APHASIA [None]
  - CARDIAC FAILURE CONGESTIVE [None]
  - HERNIA [None]
  - PHARMACEUTICAL PRODUCT COMPLAINT [None]
